FAERS Safety Report 20968846 (Version 1)
Quarter: 2022Q2

REPORT INFORMATION
  Report Type: Spontaneous
  Country: PT (occurrence: PT)
  Receive Date: 20220616
  Receipt Date: 20220616
  Transmission Date: 20220721
  Serious: Yes (Hospitalization)
  Sender: FDA-Public Use
  Company Number: PT-AZEVEDOSP-2022-00189

PATIENT
  Age: 83 Year
  Sex: Female

DRUGS (1)
  1. PAMIDRONATE DISODIUM [Suspect]
     Active Substance: PAMIDRONATE DISODIUM
     Indication: Hypercalcaemia
     Dosage: UNK

REACTIONS (2)
  - Chondrocalcinosis pyrophosphate [Recovering/Resolving]
  - Condition aggravated [Recovering/Resolving]
